FAERS Safety Report 7193770-3 (Version None)
Quarter: 2010Q4

REPORT INFORMATION
  Report Type: 
  Country: None (occurrence: None)
  Receive Date: 20101223
  Receipt Date: 20101220
  Transmission Date: 20110411
  Serious: Yes (Other)
  Sender: FDA-Public Use
  Company Number: US-US-EMD SERONO, INC.-7033138

PATIENT
  Sex: Female

DRUGS (3)
  1. REBIF [Suspect]
     Indication: PRODUCT USED FOR UNKNOWN INDICATION
     Route: 058
     Dates: start: 20101203, end: 20101201
  2. REBIF [Suspect]
     Route: 058
     Dates: start: 20101201
  3. ANTIDEPRESSANTS [Concomitant]
     Indication: EMOTIONAL DISTRESS

REACTIONS (6)
  - EYE ROLLING [None]
  - FAECAL INCONTINENCE [None]
  - FATIGUE [None]
  - FEELING HOT [None]
  - LOSS OF CONSCIOUSNESS [None]
  - PARAESTHESIA [None]
